FAERS Safety Report 11623379 (Version 1)
Quarter: 2015Q4

REPORT INFORMATION
  Report Type: Spontaneous
  Country: US (occurrence: US)
  Receive Date: 20151013
  Receipt Date: 20151013
  Transmission Date: 20160304
  Serious: No
  Sender: FDA-Public Use
  Company Number: US-JNJFOC-20150115814

PATIENT
  Age: 3 Month
  Sex: Female

DRUGS (2)
  1. INFANTS TYLENOL [Suspect]
     Active Substance: ACETAMINOPHEN
     Indication: TEETHING
     Dosage: 160MG/5ML
     Route: 048
     Dates: start: 20150117, end: 20150117
  2. TYLENOL [Concomitant]
     Active Substance: ACETAMINOPHEN
     Indication: PYREXIA
     Route: 065

REACTIONS (7)
  - Lethargy [Recovered/Resolved]
  - Dyspnoea [Recovered/Resolved]
  - Vomiting [Recovered/Resolved]
  - Cyanosis [Recovered/Resolved]
  - Drug hypersensitivity [Unknown]
  - Product contamination [Unknown]
  - Product difficult to swallow [Unknown]

NARRATIVE: CASE EVENT DATE: 20150117
